FAERS Safety Report 4440501-3 (Version None)
Quarter: 2004Q3

REPORT INFORMATION
  Report Type: 
  Country: None (occurrence: None)
  Receive Date: 20040728
  Receipt Date: 20030818
  Transmission Date: 20050211
  Serious: No
  Sender: FDA-Public Use
  Company Number: USA030947001

PATIENT
  Sex: Female

DRUGS (3)
  1. STRATTERA [Suspect]
     Dosage: 100 MG/DAY
     Dates: start: 20030101
  2. ANTI-ANXIETY MEDICATION [Concomitant]
  3. ANTIDEPRESSANT [Concomitant]

REACTIONS (5)
  - DECREASED APPETITE [None]
  - DIZZINESS [None]
  - HYPERHIDROSIS [None]
  - INSOMNIA [None]
  - MOOD SWINGS [None]
